FAERS Safety Report 10258730 (Version 2)
Quarter: 2014Q2

REPORT INFORMATION
  Report Type: Spontaneous
  Country: US (occurrence: US)
  Receive Date: 20140625
  Receipt Date: 20140625
  Transmission Date: 20141212
  Serious: No
  Sender: FDA-Public Use
  Company Number: US-ASTELLAS-2012US004721

PATIENT
  Sex: Female

DRUGS (5)
  1. VESICARE [Suspect]
     Indication: NOCTURIA
     Route: 048
  2. VESICARE [Suspect]
     Route: 048
  3. UNSPECIFIED TRADITIONAL MEDICINE [Suspect]
     Indication: NOCTURIA
     Route: 065
  4. SIMVASTATIN [Concomitant]
     Indication: PRODUCT USED FOR UNKNOWN INDICATION
     Route: 065
  5. THYROID [Concomitant]
     Indication: PRODUCT USED FOR UNKNOWN INDICATION
     Route: 065

REACTIONS (4)
  - Drug ineffective for unapproved indication [Unknown]
  - Headache [Unknown]
  - Constipation [Unknown]
  - Urinary retention [Unknown]
